FAERS Safety Report 5190398-1 (Version None)
Quarter: 2006Q4

REPORT INFORMATION
  Report Type: 
  Country: None (occurrence: None)
  Receive Date: 20061222
  Receipt Date: 20061122
  Transmission Date: 20070319
  Serious: Yes (Hospitalization)
  Sender: FDA-Public Use
  Company Number: JP-ROCHE-472055

PATIENT
  Age: 76 Year
  Sex: Male

DRUGS (1)
  1. PERDIPINE LA [Suspect]
     Indication: HYPERTENSION
     Dosage: SLOW RELEASE CAPSULES
     Route: 048
     Dates: start: 19980417, end: 20061013

REACTIONS (1)
  - TOXIC SKIN ERUPTION [None]
